FAERS Safety Report 6161990 (Version 4)
Quarter: 2024Q3

REPORT INFORMATION
  Report Type: Spontaneous
  Country: DE (occurrence: DE)
  Receive Date: 20061106
  Receipt Date: 20240921
  Transmission Date: 20241016
  Serious: Yes (Death)
  Sender: ROCHE
  Company Number: None

PATIENT
  Age: 43 Year
  Sex: Female
  Weight: 67 kg

DRUGS (9)
  1. HERCEPTIN [Suspect]
     Active Substance: TRASTUZUMAB
     Indication: Breast cancer metastatic
     Dosage: DAILY DOSE: 6 MG/KG MILLIGRAM(S)/KILOGRAM EVERY 3 WEEK
     Route: 042
     Dates: start: 20060306, end: 20060509
  2. HERCEPTIN [Suspect]
     Active Substance: TRASTUZUMAB
     Route: 042
     Dates: start: 20060315, end: 20060509
  3. HERCEPTIN [Suspect]
     Active Substance: TRASTUZUMAB
     Route: 042
     Dates: start: 20060306, end: 20060509
  4. XELODA [Suspect]
     Active Substance: CAPECITABINE
     Indication: Breast cancer metastatic
     Dosage: ON DAYS 1-14 OF 3 WEEK CYCLE.
     Route: 042
     Dates: start: 20060306, end: 20060424
  5. DEXAMETHASONE [Concomitant]
     Active Substance: DEXAMETHASONE
     Route: 065
     Dates: start: 20060509
  6. ZOMETA [Concomitant]
     Active Substance: ZOLEDRONIC ACID
     Indication: Metastases to bone
     Route: 065
     Dates: start: 200510
  7. ZOMETA [Concomitant]
     Active Substance: ZOLEDRONIC ACID
     Dates: start: 20051015
  8. NAVELBINE [Concomitant]
     Active Substance: VINORELBINE TARTRATE
     Indication: Breast cancer metastatic
     Dosage: GIVEN ON DAYS 1 AND 8 OF 3 WEEK CYCLE.
     Route: 042
     Dates: start: 20060306, end: 20060509
  9. ROXITHROMYCIN [Concomitant]
     Active Substance: ROXITHROMYCIN

REACTIONS (11)
  - Anaphylactic reaction [Fatal]
  - Pulmonary oedema [Fatal]
  - Circulatory collapse [Fatal]
  - Palmar-plantar erythrodysaesthesia syndrome [Fatal]
  - Feeling hot [Fatal]
  - Paraesthesia [Fatal]
  - Sudden death [Fatal]
  - Pyrexia [Fatal]
  - Dyspnoea [Fatal]
  - Anxiety [Fatal]
  - Cough [Unknown]

NARRATIVE: CASE EVENT DATE: 20060401
